FAERS Safety Report 5616568-3 (Version None)
Quarter: 2008Q1

REPORT INFORMATION
  Report Type: 
  Country: None (occurrence: None)
  Receive Date: 20080207
  Receipt Date: 20070725
  Transmission Date: 20080703
  Serious: No
  Sender: FDA-Public Use
  Company Number: A0666318A

PATIENT
  Age: 54 Year
  Sex: Female

DRUGS (6)
  1. PAXIL CR [Suspect]
     Indication: DRUG USE FOR UNKNOWN INDICATION
     Dosage: 25MG PER DAY
     Route: 048
  2. DIOVAN HCT [Concomitant]
  3. PROVENTIL-HFA [Concomitant]
  4. ALLEGRA D 24 HOUR [Concomitant]
  5. ZOVIRAX [Concomitant]
  6. ZOVIRAX [Concomitant]

REACTIONS (1)
  - NIGHTMARE [None]
